FAERS Safety Report 4734704-8 (Version None)
Quarter: 2005Q3

REPORT INFORMATION
  Report Type: 
  Country: None (occurrence: None)
  Receive Date: 20050804
  Receipt Date: 20050725
  Transmission Date: 20060218
  Serious: Yes (Other)
  Sender: FDA-Public Use
  Company Number: US-JNJFOC-20050602054

PATIENT
  Sex: Female
  Weight: 73.48 kg

DRUGS (5)
  1. LEVAQUIN [Suspect]
     Dosage: TOOK DRUG FOR 7 WEEKS
  2. ADVAIR DISKUS 100/50 [Concomitant]
  3. ADVAIR DISKUS 100/50 [Concomitant]
  4. SUDAFED 12 HOUR [Concomitant]
  5. FOSAMAX [Concomitant]
     Dosage: FOSAMAX 70- EVERY WEEK

REACTIONS (3)
  - DIPLOPIA [None]
  - JOINT SWELLING [None]
  - PAIN [None]
